FAERS Safety Report 8677027 (Version 2)
Quarter: 2013Q4

REPORT INFORMATION
  Report Type: Spontaneous
  Country: US (occurrence: US)
  Receive Date: 20120723
  Receipt Date: 20131101
  Transmission Date: 20140711
  Serious: No
  Sender: FDA-Public Use
  Company Number: US-009507513-1207USA005398

PATIENT
  Sex: Female

DRUGS (3)
  1. DULERA [Suspect]
     Indication: ASTHMA
  2. ADVAIR [Concomitant]
     Indication: ASTHMA
     Dosage: UNK
  3. ADVAIR [Concomitant]
     Indication: CHRONIC OBSTRUCTIVE PULMONARY DISEASE

REACTIONS (3)
  - Chronic obstructive pulmonary disease [Not Recovered/Not Resolved]
  - Drug ineffective [Unknown]
  - Asthma [Not Recovered/Not Resolved]
